FAERS Safety Report 9728214 (Version 1)
Quarter: 2013Q4

REPORT INFORMATION
  Report Type: Spontaneous
  Country: US (occurrence: None)
  Receive Date: 20131202
  Receipt Date: 20131202
  Transmission Date: 20140711
  Serious: Yes (Hospitalization, Other)
  Sender: FDA-Public Use
  Company Number: 20130677

PATIENT
  Age: 71 Year
  Sex: Female

DRUGS (9)
  1. SODIUM THIOSULFATE [Suspect]
     Indication: CALCIPHYLAXIS
     Dosage: 25 G DAILY INTRAVENOUS
     Route: 042
  2. CINACALCET [Concomitant]
  3. MEROPENEM [Concomitant]
  4. VANCOMYCIN [Concomitant]
  5. INSULIN [Concomitant]
  6. CARVEDILOL [Concomitant]
  7. CLOPIDOGREL [Concomitant]
  8. SIMVASTATIN [Concomitant]
  9. AMLODIPINE [Concomitant]

REACTIONS (11)
  - Metabolic acidosis [None]
  - Cardio-respiratory arrest [None]
  - Renal failure chronic [None]
  - Haemodialysis [None]
  - General physical health deterioration [None]
  - Presyncope [None]
  - Unresponsive to stimuli [None]
  - Depressed level of consciousness [None]
  - Hypoxia [None]
  - Sinus bradycardia [None]
  - Electrocardiogram QT prolonged [None]
